FAERS Safety Report 6947721-4 (Version None)
Quarter: 2010Q3

REPORT INFORMATION
  Report Type: 
  Country: None (occurrence: None)
  Receive Date: 20100828
  Receipt Date: 20090925
  Transmission Date: 20110219
  Serious: No
  Sender: FDA-Public Use
  Company Number: US-ABBOTT-09P-163-0599946-00

PATIENT
  Sex: Female
  Weight: 80.812 kg

DRUGS (4)
  1. NIASPAN [Suspect]
     Indication: BLOOD CHOLESTEROL INCREASED
     Route: 048
     Dates: start: 20090917, end: 20090922
  2. NIASPAN [Suspect]
     Route: 048
     Dates: start: 20090501, end: 20090601
  3. ASPIRIN [Concomitant]
     Indication: PRODUCT USED FOR UNKNOWN INDICATION
     Dosage: PRIOR TO TAKING NIASPAN THERAPY
     Dates: start: 20090501, end: 20090601
  4. ENTERIC ASPIRIN [Concomitant]
     Indication: PRODUCT USED FOR UNKNOWN INDICATION
     Dosage: ONE DAILY, WITH NIASPAN THERAPY
     Route: 048
     Dates: start: 20090917, end: 20090922

REACTIONS (6)
  - FEELING HOT [None]
  - FLUSHING [None]
  - PARAESTHESIA [None]
  - PRURITUS [None]
  - SWELLING [None]
  - URTICARIA [None]
